FAERS Safety Report 9249305 (Version 2)
Quarter: 2013Q2

REPORT INFORMATION
  Report Type: Spontaneous
  Country: US (occurrence: US)
  Receive Date: 20130423
  Receipt Date: 20130515
  Transmission Date: 20140414
  Serious: No
  Sender: FDA-Public Use
  Company Number: US-009507513-1304USA008907

PATIENT
  Sex: Female

DRUGS (2)
  1. DORZOLAMIDE HYDROCHLORIDE/TIMOLOL MALEATE [Suspect]
     Indication: GLAUCOMA
     Dosage: 1 GTT, IN BOTH EYES, BID
     Route: 047
     Dates: start: 20130222
  2. DORZOLAMIDE HYDROCHLORIDE/TIMOLOL MALEATE [Suspect]
     Indication: GLAUCOMA
     Dosage: 1 GTT, IN BOTH EYES, BID
     Route: 047
     Dates: start: 20130222

REACTIONS (3)
  - Asthenopia [Recovered/Resolved]
  - Intraocular pressure decreased [Recovered/Resolved]
  - Eye irritation [Recovered/Resolved]
